FAERS Safety Report 11156300 (Version 2)
Quarter: 2015Q2

REPORT INFORMATION
  Report Type: Spontaneous
  Country: US (occurrence: US)
  Receive Date: 20150602
  Receipt Date: 20150625
  Transmission Date: 20150821
  Serious: Yes (Death, Hospitalization)
  Sender: FDA-Public Use
  Company Number: US-INCYTE CORPORATION-2015IN002303

PATIENT
  Age: 82 Year
  Sex: Female

DRUGS (12)
  1. LOPERAMIDE [Concomitant]
     Active Substance: LOPERAMIDE
  2. PROCRIT [Concomitant]
     Active Substance: ERYTHROPOIETIN
  3. TRAMADOL [Concomitant]
     Active Substance: TRAMADOL
  4. DILTIAZEM [Concomitant]
     Active Substance: DILTIAZEM
  5. VALACYCLOVIR HCL PHARMA PAC [Concomitant]
     Active Substance: VALACYCLOVIR HYDROCHLORIDE
  6. COREG [Concomitant]
     Active Substance: CARVEDILOL
  7. ALLOPURINOL. [Concomitant]
     Active Substance: ALLOPURINOL
  8. HYDROXYUREA. [Concomitant]
     Active Substance: HYDROXYUREA
  9. ZOFRAN                             /00955301/ [Concomitant]
     Active Substance: ONDANSETRON HYDROCHLORIDE
  10. JAKAFI [Suspect]
     Active Substance: RUXOLITINIB
     Indication: POLYCYTHAEMIA VERA
     Dosage: 10 MG, BID
     Route: 048
  11. ANAGRELIDE [Concomitant]
     Active Substance: ANAGRELIDE
  12. ENALAPRIL [Concomitant]
     Active Substance: ENALAPRIL

REACTIONS (2)
  - Pancytopenia [Unknown]
  - Death [Fatal]

NARRATIVE: CASE EVENT DATE: 20150618
